FAERS Safety Report 16089289 (Version 1)
Quarter: 2019Q2

REPORT INFORMATION
  Report Type: Spontaneous
  Country: US (occurrence: US)
  Receive Date: 20190319
  Receipt Date: 20190319
  Transmission Date: 20190711
  Serious: Yes (Death)
  Sender: FDA-Public Use
  Company Number: None

PATIENT
  Age: 78 Year
  Sex: Male

DRUGS (4)
  1. METHYLPHENIDATE 5MG TABLET [Concomitant]
  2. METHIMAZOLE TABLET 5MG [Concomitant]
  3. RAPAFLO CAPSULE 8MG [Concomitant]
  4. ABIRATERONE ACETATE. [Suspect]
     Active Substance: ABIRATERONE ACETATE
     Indication: NEOPLASM MALIGNANT
     Route: 048
     Dates: start: 20180529

REACTIONS (1)
  - Death [None]

NARRATIVE: CASE EVENT DATE: 20190228
